FAERS Safety Report 20879175 (Version 2)
Quarter: 2022Q3

REPORT INFORMATION
  Report Type: Spontaneous
  Country: US (occurrence: US)
  Receive Date: 20220526
  Receipt Date: 20220715
  Transmission Date: 20221026
  Serious: Yes (Death)
  Sender: FDA-Public Use
  Company Number: US-ELI_LILLY_AND_COMPANY-US202205009786

PATIENT
  Sex: Male
  Weight: 171.2 kg

DRUGS (2)
  1. BASAGLAR [Suspect]
     Active Substance: INSULIN GLARGINE
     Indication: Product used for unknown indication
     Dosage: 100 U, UNKNOWN
     Route: 065
     Dates: start: 20200227
  2. HUMALOG [Suspect]
     Active Substance: INSULIN LISPRO
     Indication: Product used for unknown indication
     Dosage: 100 U, UNKNOWN
     Route: 065
     Dates: start: 20200227

REACTIONS (5)
  - Chronic obstructive pulmonary disease [Fatal]
  - Hypertension [Fatal]
  - Bladder cancer [Fatal]
  - Type 2 diabetes mellitus [Fatal]
  - Obesity [Fatal]
